FAERS Safety Report 24725668 (Version 4)
Quarter: 2025Q4

REPORT INFORMATION
  Report Type: Report from Study
  Country: EU (occurrence: EU)
  Receive Date: 20241212
  Receipt Date: 20251121
  Transmission Date: 20260118
  Serious: Yes (Other)
  Sender: ABBVIE
  Company Number: EU-ABBVIE-6035543

PATIENT
  Age: 81 Year
  Sex: Female

DRUGS (14)
  1. FOSCARBIDOPA\FOSLEVODOPA [Suspect]
     Active Substance: FOSCARBIDOPA\FOSLEVODOPA
     Indication: Parkinson^s disease
     Dosage: LOADING DOSE:1.20 ML, BASE INFUSION RATE:0.34 ML/H, HIGH INFUSION RATE:0.34 ML/H, LOW INFUSION RA...
     Route: 058
     Dates: start: 20240408, end: 20240409
  2. FOSCARBIDOPA\FOSLEVODOPA [Suspect]
     Active Substance: FOSCARBIDOPA\FOSLEVODOPA
     Dosage: LOADING DOSE:1.20 ML, BASE INFUSION RATE:0.34 ML/H, HIGH INFUSION RATE:0.34 ML/H, LOW INFUSION RA...
     Route: 058
     Dates: start: 20240409, end: 20240410
  3. FOSCARBIDOPA\FOSLEVODOPA [Suspect]
     Active Substance: FOSCARBIDOPA\FOSLEVODOPA
     Dosage: LOADING DOSE:1.20 ML, BASE INFUSION RATE:0.34 ML/H, HIGH INFUSION RATE:0.34 ML/H, LOW INFUSION RA...
     Route: 058
     Dates: start: 20240410, end: 20240416
  4. FOSCARBIDOPA\FOSLEVODOPA [Suspect]
     Active Substance: FOSCARBIDOPA\FOSLEVODOPA
     Dosage: LOADING DOSE:1.20 ML, BASE INFUSION RATE:0.35 ML/H, HIGH INFUSION RATE:0.35 ML/H, LOW INFUSION RA...
     Route: 058
     Dates: start: 20240416, end: 20240424
  5. FOSCARBIDOPA\FOSLEVODOPA [Suspect]
     Active Substance: FOSCARBIDOPA\FOSLEVODOPA
     Dosage: LOADING DOSE:1.20 ML, BASE INFUSION RATE:0.38 ML/H, HIGH INFUSION RATE:0.38 ML/H, LOW INFUSION RA...
     Route: 058
     Dates: start: 20240424, end: 20240429
  6. FOSCARBIDOPA\FOSLEVODOPA [Suspect]
     Active Substance: FOSCARBIDOPA\FOSLEVODOPA
     Dosage: LOADING DOSE:1.20 ML, BASE INFUSION RATE:0.41 ML/H, HIGH INFUSION RATE:0.41ML/H, LOW INFUSION RAT...
     Route: 058
     Dates: start: 20240429, end: 20240501
  7. FOSCARBIDOPA\FOSLEVODOPA [Suspect]
     Active Substance: FOSCARBIDOPA\FOSLEVODOPA
     Dosage: LOADING DOSE:1.20 ML, BASE INFUSION RATE:0.44 ML/H, HIGH INFUSION RATE:0.44 ML/H, LOW INFUSION RA...
     Route: 058
     Dates: start: 20240501, end: 20240507
  8. FOSCARBIDOPA\FOSLEVODOPA [Suspect]
     Active Substance: FOSCARBIDOPA\FOSLEVODOPA
     Dosage: LOADING DOSE:1.20 ML, BASE INFUSION RATE:0.47 ML/H, HIGH INFUSION RATE:0.47 ML/H, LOW INFUSION RA...
     Route: 058
     Dates: start: 20240507, end: 20240523
  9. FOSCARBIDOPA\FOSLEVODOPA [Suspect]
     Active Substance: FOSCARBIDOPA\FOSLEVODOPA
     Dosage: LOADING DOSE:1.20 ML, BASE INFUSION RATE:0.50 ML/H, HIGH INFUSION RATE:0.50 ML/H, LOW INFUSION RA...
     Route: 058
     Dates: start: 20240523, end: 20240604
  10. FOSCARBIDOPA\FOSLEVODOPA [Suspect]
     Active Substance: FOSCARBIDOPA\FOSLEVODOPA
     Dosage: LOADING DOSE:1.20 ML, BASE INFUSION RATE:0.50 ML/H, HIGH INFUSION RATE:0.50 ML/H, LOW INFUSION RA...
     Route: 058
     Dates: start: 20240604, end: 20240618
  11. FOSCARBIDOPA\FOSLEVODOPA [Suspect]
     Active Substance: FOSCARBIDOPA\FOSLEVODOPA
     Dosage: LOADING DOSE:1.20 ML, BASE INFUSION RATE:0.52 ML/H, HIGH INFUSION RATE:0.52 ML/H, LOW INFUSION RA...
     Route: 058
     Dates: start: 20240618, end: 20240904
  12. FOSCARBIDOPA\FOSLEVODOPA [Suspect]
     Active Substance: FOSCARBIDOPA\FOSLEVODOPA
     Dosage: LOADING DOSE:1.20 ML, BASE INFUSION RATE:0.52 ML/H, HIGH INFUSION RATE:0.55ML/H, LOW INFUSION RAT...
     Route: 058
     Dates: start: 20240904, end: 20240912
  13. FOSCARBIDOPA\FOSLEVODOPA [Suspect]
     Active Substance: FOSCARBIDOPA\FOSLEVODOPA
     Dosage: LOADING DOSE:1.20 ML, BASE INFUSION RATE:0.52 ML/H, HIGH INFUSION RATE:0.55ML/H, LOW INFUSION RAT...
     Route: 058
     Dates: start: 20240912
  14. RIVASTIGMINE [Concomitant]
     Active Substance: RIVASTIGMINE
     Indication: Parkinson^s disease
     Dosage: PATCH

REACTIONS (18)
  - Medical device implantation [Not Recovered/Not Resolved]
  - Syncope [Recovered/Resolved]
  - Heart rate irregular [Recovered/Resolved]
  - Limb discomfort [Recovered/Resolved]
  - Pallor [Recovered/Resolved]
  - Cystitis noninfective [Recovered/Resolved]
  - Listless [Not Recovered/Not Resolved]
  - Asthenia [Not Recovered/Not Resolved]
  - Fatigue [Not Recovered/Not Resolved]
  - Infusion site induration [Not Recovered/Not Resolved]
  - Infusion site bruising [Not Recovered/Not Resolved]
  - Catheter site pain [Not Recovered/Not Resolved]
  - On and off phenomenon [Not Recovered/Not Resolved]
  - Cystitis [Unknown]
  - Device difficult to use [Not Recovered/Not Resolved]
  - Loss of personal independence in daily activities [Not Recovered/Not Resolved]
  - Negative thoughts [Not Recovered/Not Resolved]
  - Incorrect dose administered [Not Recovered/Not Resolved]

NARRATIVE: CASE EVENT DATE: 20240101
